FAERS Safety Report 6628372-8 (Version None)
Quarter: 2010Q1

REPORT INFORMATION
  Report Type: 
  Country: None (occurrence: None)
  Receive Date: 20100311
  Receipt Date: 20100305
  Transmission Date: 20100710
  Serious: Yes (Other)
  Sender: FDA-Public Use
  Company Number: KR-ELI_LILLY_AND_COMPANY-KR201003001478

PATIENT
  Sex: Male
  Weight: 71 kg

DRUGS (4)
  1. PEMETREXED [Suspect]
     Indication: NON-SMALL CELL LUNG CANCER
     Dosage: 500 MG/M2 DAY ONE EVER 21 DAYS
     Route: 042
     Dates: start: 20080613
  2. FOLIC ACID [Concomitant]
     Dosage: 1 MG, DAILY (1/D)
     Dates: start: 20080613
  3. VITAMIN B-12 [Concomitant]
     Route: 030
     Dates: start: 20080613
  4. DEXAMETHASONE [Concomitant]
     Dosage: 3 MG, 2/D
     Dates: start: 20080613

REACTIONS (1)
  - PULMONARY EMBOLISM [None]
